FAERS Safety Report 7031662-0 (Version None)
Quarter: 2010Q4

REPORT INFORMATION
  Report Type: 
  Country: None (occurrence: None)
  Receive Date: 20101006
  Receipt Date: 20101006
  Transmission Date: 20110411
  Serious: No
  Sender: FDA-Public Use
  Company Number: None

PATIENT
  Age: 53 Year
  Sex: Female
  Weight: 103 kg

DRUGS (1)
  1. VANCOMYCIN [Suspect]
     Indication: CELLULITIS STAPHYLOCOCCAL
     Dosage: 1400 MG EVERY 12 HOURS IV DRIP
     Route: 041
     Dates: start: 20100904, end: 20100912

REACTIONS (6)
  - ALANINE AMINOTRANSFERASE INCREASED [None]
  - ASPARTATE AMINOTRANSFERASE INCREASED [None]
  - CHILLS [None]
  - PLATELET COUNT DECREASED [None]
  - RASH MACULAR [None]
  - WHITE BLOOD CELL COUNT DECREASED [None]
